FAERS Safety Report 24710345 (Version 1)
Quarter: 2024Q4

REPORT INFORMATION
  Report Type: Spontaneous
  Country: ES (occurrence: ES)
  Receive Date: 20241209
  Receipt Date: 20241209
  Transmission Date: 20250114
  Serious: Yes (Other)
  Sender: ORGANON
  Company Number: None

PATIENT
  Age: 37 Year
  Sex: Female
  Weight: 79 kg

DRUGS (3)
  1. NASONEX [Suspect]
     Active Substance: MOMETASONE FUROATE
     Indication: Nasal congestion
     Dosage: 2 SPRAYS MORNING AND NIGHT (NASAL SPRAY SUSPENSION, 1 SPRAY BOTTLE OF 140 DOSES)
     Route: 045
     Dates: start: 20241119, end: 20241122
  2. ACETYLCYSTEINE [Concomitant]
     Active Substance: ACETYLCYSTEINE
     Indication: Increased viscosity of upper respiratory secretion
     Dosage: 1 PER DAY (GENERIC DRUG EFFERVESCENT TABLETS, 20 TABLETS)
     Dates: start: 20241119
  3. BILASTINE [Concomitant]
     Active Substance: BILASTINE
     Dosage: 1 PER DAY (20 TABLETS)
     Dates: start: 20241119

REACTIONS (2)
  - Hypogeusia [Not Recovered/Not Resolved]
  - Hyposmia [Not Recovered/Not Resolved]

NARRATIVE: CASE EVENT DATE: 20241120
